FAERS Safety Report 7224883-5 (Version None)
Quarter: 2011Q1

REPORT INFORMATION
  Report Type: 
  Country: None (occurrence: None)
  Receive Date: 20110103
  Receipt Date: 20101220
  Transmission Date: 20110831
  Serious: Yes (Other)
  Sender: FDA-Public Use
  Company Number: 2010SP065993

PATIENT

DRUGS (1)
  1. CELESTAMINE TAB [Suspect]
     Dosage: PO
     Route: 048
     Dates: end: 20090101

REACTIONS (1)
  - CEREBRAL HAEMORRHAGE [None]
